FAERS Safety Report 4871417-6 (Version None)
Quarter: 2006Q1

REPORT INFORMATION
  Report Type: 
  Country: None (occurrence: None)
  Receive Date: 20060103
  Receipt Date: 20051005
  Transmission Date: 20060701
  Serious: Yes (Hospitalization)
  Sender: FDA-Public Use
  Company Number: US-MERCK-0510USA05299

PATIENT
  Age: 55 Year
  Sex: Female
  Weight: 59 kg

DRUGS (14)
  1. VIOXX [Suspect]
     Indication: OSTEOARTHRITIS
     Route: 048
     Dates: start: 20010101, end: 20040901
  2. VIOXX [Suspect]
     Indication: FIBROMYALGIA
     Route: 048
     Dates: start: 20010101, end: 20040901
  3. AVELOX [Concomitant]
     Route: 065
  4. PREDNISONE [Concomitant]
     Route: 065
  5. ATENOLOL [Concomitant]
     Route: 065
  6. MEVACOR [Concomitant]
     Route: 065
  7. PREMARIN [Concomitant]
     Route: 065
  8. FLONASE [Concomitant]
     Route: 065
  9. ALLOPURINOL [Concomitant]
     Route: 065
  10. ZOLOFT [Concomitant]
     Route: 065
  11. CLONAZEPAM [Concomitant]
     Route: 065
  12. ENTEX (NEW FORMULA) [Concomitant]
     Route: 065
  13. ALLEGRA [Concomitant]
     Route: 065
  14. PROTONIX [Concomitant]
     Route: 065

REACTIONS (4)
  - CARDIAC DISORDER [None]
  - DEPRESSION [None]
  - MYOCARDIAL INFARCTION [None]
  - STRESS [None]
